FAERS Safety Report 6838409-9 (Version None)
Quarter: 2010Q3

REPORT INFORMATION
  Report Type: 
  Country: None (occurrence: None)
  Receive Date: 20100713
  Receipt Date: 20070611
  Transmission Date: 20110219
  Serious: No
  Sender: FDA-Public Use
  Company Number: US-PFIZER INC-2007048626

PATIENT
  Sex: Female
  Weight: 62.2 kg

DRUGS (10)
  1. CHANTIX [Suspect]
     Indication: SMOKING CESSATION THERAPY
     Dosage: EVERY DAY
     Dates: start: 20070501
  2. XOPENEX [Concomitant]
     Indication: ASTHMA
  3. ADVAIR DISKUS 100/50 [Concomitant]
     Indication: ASTHMA
     Route: 055
  4. SPIRIVA [Concomitant]
     Indication: ASTHMA
     Route: 055
  5. ACETYLSALICYLIC ACID [Concomitant]
  6. SOTALOL HCL [Concomitant]
  7. ISOSORBIDE MONONITRATE [Concomitant]
  8. SPIRONOLACTONE [Concomitant]
  9. LISINOPRIL [Concomitant]
  10. COTRIM [Concomitant]

REACTIONS (1)
  - NAUSEA [None]
